FAERS Safety Report 5085899-0 (Version None)
Quarter: 2006Q3

REPORT INFORMATION
  Report Type: 
  Country: None (occurrence: None)
  Receive Date: 20060815
  Receipt Date: 20060804
  Transmission Date: 20061208
  Serious: Yes (Death)
  Sender: FDA-Public Use
  Company Number: THYM-11027

PATIENT
  Age: 4 Year
  Sex: Male

DRUGS (3)
  1. THYMOGLOBULIN [Suspect]
     Indication: APLASTIC ANAEMIA
     Dosage: 50 MG QD IV
     Route: 042
     Dates: start: 20060728, end: 20060729
  2. THYMOGLOBULIN [Suspect]
     Indication: APLASTIC ANAEMIA
     Dosage: 125 MG QD IV
     Route: 042
     Dates: start: 20060731, end: 20060731
  3. PRESENIUS [Suspect]
     Indication: APLASTIC ANAEMIA
     Dosage: 50 MG QD IV
     Route: 042
     Dates: start: 20060730, end: 20060730

REACTIONS (1)
  - CARDIAC FAILURE [None]
